FAERS Safety Report 8345115 (Version 2)
Quarter: 2013Q1

REPORT INFORMATION
  Report Type: Spontaneous
  Country: DK (occurrence: DK)
  Receive Date: 20120120
  Receipt Date: 20130207
  Transmission Date: 20140127
  Serious: Yes (Other)
  Sender: FDA-Public Use
  Company Number: DK-PFIZER INC-2012011481

PATIENT
  Age: 34 Year
  Sex: Female
  Weight: 84 kg

DRUGS (2)
  1. LYRICA [Suspect]
     Indication: ANXIETY
     Dosage: 150 MG, 2X/DAY
     Route: 048
     Dates: start: 20090302, end: 20120201
  2. LAMOTRIGINE [Concomitant]
     Indication: ANXIETY
     Dosage: UP TO 150 MG TWICE DAILY
     Dates: start: 20090921, end: 20120201

REACTIONS (2)
  - Tooth loss [Not Recovered/Not Resolved]
  - Dry mouth [Recovered/Resolved]
